FAERS Safety Report 8005750-6 (Version None)
Quarter: 2011Q4

REPORT INFORMATION
  Report Type: 
  Country: None (occurrence: None)
  Receive Date: 20111223
  Receipt Date: 20111207
  Transmission Date: 20120403
  Serious: Yes (Other)
  Sender: FDA-Public Use
  Company Number: JP-ALLERGAN-1116733US

PATIENT
  Age: 63 Year
  Sex: Male

DRUGS (1)
  1. LUMIGAN [Suspect]
     Indication: OPEN ANGLE GLAUCOMA
     Dosage: 1 GTT, QPM
     Route: 047
     Dates: start: 20091127, end: 20101013

REACTIONS (3)
  - GLAUCOMA [None]
  - CONJUNCTIVAL HYPERAEMIA [None]
  - CATARACT [None]
